FAERS Safety Report 15150945 (Version 1)
Quarter: 2018Q3

REPORT INFORMATION
  Report Type: Spontaneous
  Country: US (occurrence: US)
  Receive Date: 20180716
  Receipt Date: 20180716
  Transmission Date: 20181010
  Serious: Yes (Other)
  Sender: FDA-Public Use
  Company Number: US-SA-2018SA184849

PATIENT
  Age: 57 Year
  Sex: Female
  Weight: 104.32 kg

DRUGS (5)
  1. TAXOTERE [Suspect]
     Active Substance: DOCETAXEL
     Dosage: 150 UNK
     Route: 042
     Dates: start: 20110713, end: 20110713
  2. HERCEPTIN [Concomitant]
     Active Substance: TRASTUZUMAB
     Dosage: 189 UNK
     Dates: start: 20110420, end: 20110713
  3. TAXOTERE [Suspect]
     Active Substance: DOCETAXEL
     Dosage: 150 MG, Q3W
     Route: 042
     Dates: start: 20110330, end: 20110330
  4. CARBOPLATIN. [Concomitant]
     Active Substance: CARBOPLATIN
     Dosage: 800 MG
     Dates: start: 20110330, end: 20110713
  5. HERCEPTIN [Concomitant]
     Active Substance: TRASTUZUMAB
     Dosage: 357 MG
     Dates: start: 20110330

REACTIONS (2)
  - Alopecia [Recovering/Resolving]
  - Psychological trauma [Unknown]

NARRATIVE: CASE EVENT DATE: 20120113
